FAERS Safety Report 9775117 (Version 1)
Quarter: 2013Q4

REPORT INFORMATION
  Report Type: Spontaneous
  Country: US (occurrence: US)
  Receive Date: 20131220
  Receipt Date: 20131220
  Transmission Date: 20140711
  Serious: No
  Sender: FDA-Public Use
  Company Number: US-B.I. PHARMACEUTICALS,INC./RIDGEFIELD-2013-BI-40226BP

PATIENT
  Sex: Female

DRUGS (1)
  1. COMBIVENT [Suspect]
     Indication: CHRONIC OBSTRUCTIVE PULMONARY DISEASE
     Dosage: STRENGTH: 18 MCG / 103 MCG (2 PUFF)
     Route: 055
     Dates: end: 2013

REACTIONS (3)
  - Asthenia [Not Recovered/Not Resolved]
  - Abnormal loss of weight [Unknown]
  - Pneumonia [Recovered/Resolved with Sequelae]
